FAERS Safety Report 16447240 (Version 1)
Quarter: 2019Q2

REPORT INFORMATION
  Report Type: Report from Study
  Country: US (occurrence: US)
  Receive Date: 20190618
  Receipt Date: 20190618
  Transmission Date: 20190711
  Serious: Yes (Other)
  Sender: FDA-Public Use
  Company Number: US-GILEAD-2019-0413975

PATIENT
  Age: 53 Year
  Sex: Male

DRUGS (2)
  1. SOFOSBUVIR W/VELPATASVIR [Suspect]
     Active Substance: SOFOSBUVIR\VELPATASVIR
     Indication: HEPATITIS C
     Dosage: UNK, QD
     Route: 048
     Dates: start: 20190310
  2. RIBAVIRIN. [Concomitant]
     Active Substance: RIBAVIRIN
     Dosage: UNKNOWN

REACTIONS (1)
  - Kidney infection [Not Recovered/Not Resolved]

NARRATIVE: CASE EVENT DATE: 20190616
